FAERS Safety Report 11329237 (Version 1)
Quarter: 2015Q3

REPORT INFORMATION
  Report Type: Spontaneous
  Country: FR (occurrence: FR)
  Receive Date: 20150803
  Receipt Date: 20150803
  Transmission Date: 20151125
  Serious: Yes (Other)
  Sender: FDA-Public Use
  Company Number: FR-CIPLA LTD.-2015FR06074

PATIENT

DRUGS (1)
  1. ZIDOVUDINE. [Suspect]
     Active Substance: ZIDOVUDINE
     Dosage: UNK
     Route: 064

REACTIONS (3)
  - Disability [Unknown]
  - Cardiac arrest [Recovered/Resolved with Sequelae]
  - Foetal exposure during pregnancy [Unknown]
